FAERS Safety Report 9262781 (Version 4)
Quarter: 2013Q2

REPORT INFORMATION
  Report Type: Spontaneous
  Country: JP (occurrence: JP)
  Receive Date: 20130430
  Receipt Date: 20130603
  Transmission Date: 20140414
  Serious: Yes (Other)
  Sender: FDA-Public Use
  Company Number: JP-JNJFOC-20130410282

PATIENT
  Age: 51 Year
  Sex: Male

DRUGS (7)
  1. TRAMCET [Suspect]
     Indication: PAIN
     Dosage: 1 PER 1 DAY
     Route: 048
     Dates: start: 20130405
  2. GASTER [Concomitant]
     Dosage: ONCE DAILY
     Route: 065
  3. JANUVIA [Concomitant]
     Indication: DIABETES MELLITUS
     Dosage: ONCE DAILY
     Route: 048
  4. PURSENNID [Concomitant]
     Dosage: ONCE DAILY
     Route: 048
  5. LYRICA [Concomitant]
     Indication: PAIN
     Dosage: ONCE DAILY
     Route: 048
     Dates: start: 20130118
  6. CYMBALTA [Concomitant]
     Indication: PAIN
     Dosage: ONCE DAILY
     Route: 048
     Dates: start: 20130208
  7. LOXONIN [Concomitant]
     Indication: PAIN
     Dosage: 1 PER DAY
     Route: 065
     Dates: start: 20130514

REACTIONS (4)
  - Hallucination [Recovered/Resolved]
  - Anger [Recovered/Resolved]
  - Delirium [Recovered/Resolved]
  - Blood pressure diastolic increased [Recovering/Resolving]
